FAERS Safety Report 6285816-1 (Version None)
Quarter: 2009Q3

REPORT INFORMATION
  Report Type: 
  Country: None (occurrence: None)
  Receive Date: 20090728
  Receipt Date: 20090720
  Transmission Date: 20100115
  Serious: Yes (Hospitalization)
  Sender: FDA-Public Use
  Company Number: US-BIOGENIDEC-2008BI018497

PATIENT
  Age: 43 Year
  Sex: Female

DRUGS (5)
  1. AVONEX [Suspect]
     Indication: MULTIPLE SCLEROSIS
     Route: 030
     Dates: start: 20061014
  2. LISINOPRIL [Concomitant]
     Indication: CARDIOMEGALY
     Dates: start: 20050101
  3. LIPITOR [Concomitant]
     Indication: CARDIOMEGALY
     Dates: start: 20050101
  4. NITROGLYCERIN SL [Concomitant]
     Indication: CARDIOMEGALY
     Dates: start: 20050101
  5. ASPIRIN [Concomitant]
     Indication: CARDIOMEGALY
     Dates: start: 20050101

REACTIONS (3)
  - CARDIOMEGALY [None]
  - CHEST PAIN [None]
  - OEDEMA PERIPHERAL [None]
